FAERS Safety Report 13455644 (Version 1)
Quarter: 2017Q2

REPORT INFORMATION
  Report Type: Spontaneous
  Country: US (occurrence: US)
  Receive Date: 20170418
  Receipt Date: 20170418
  Transmission Date: 20170830
  Serious: Yes (Other)
  Sender: FDA-Public Use
  Company Number: None

PATIENT
  Age: 63 Year
  Sex: Male
  Weight: 60.75 kg

DRUGS (8)
  1. CRESTOR [Concomitant]
     Active Substance: ROSUVASTATIN CALCIUM
  2. VITAMIN D3 [Concomitant]
     Active Substance: CHOLECALCIFEROL
  3. GABAPENTIN. [Concomitant]
     Active Substance: GABAPENTIN
  4. COENZYME Q10 [Concomitant]
     Active Substance: UBIDECARENONE
  5. LOSARTAN. [Concomitant]
     Active Substance: LOSARTAN
  6. ANDROGEL [Concomitant]
     Active Substance: TESTOSTERONE
  7. VITAMIN B12 [Concomitant]
     Active Substance: CYANOCOBALAMIN
  8. PROLIA [Suspect]
     Active Substance: DENOSUMAB
     Indication: OSTEOPOROSIS
     Dosage: OTHER FREQUENCY:TWICE A YEAR;OTHER ROUTE:INJECTED INTO THE STOMACH?
     Dates: start: 20170131

REACTIONS (1)
  - Alopecia [None]

NARRATIVE: CASE EVENT DATE: 20170131
